FAERS Safety Report 4909763-X (Version None)
Quarter: 2006Q1

REPORT INFORMATION
  Report Type: 
  Country: None (occurrence: None)
  Receive Date: 20060208
  Receipt Date: 20060131
  Transmission Date: 20060701
  Serious: Yes (Other)
  Sender: FDA-Public Use
  Company Number: 2005008280

PATIENT
  Sex: Female
  Weight: 72.5755 kg

DRUGS (27)
  1. NEURONTIN [Suspect]
     Indication: DIABETIC NEUROPATHY
     Dosage: SEE IMAGE
     Route: 048
     Dates: start: 20050713
  2. NEURONTIN [Suspect]
     Indication: DIABETIC NEUROPATHY
     Dosage: SEE IMAGE
     Route: 048
     Dates: start: 20050801
  3. GABAPENTIN [Suspect]
     Indication: NEURALGIA
     Dosage: 1200 MG (600 MG, 2 IN 1 D),
     Dates: start: 20050101, end: 20050713
  4. XANAX [Suspect]
     Indication: PAIN
     Dosage: (0.5 MG),
     Dates: start: 19990101
  5. MORPHINE [Suspect]
     Indication: PAIN
  6. LYRICA [Suspect]
     Indication: DIABETIC NEUROPATHY
     Dosage: 100 MG (50 MG, 2 IN 1 D)
     Dates: start: 20051201
  7. GABAPENTIN [Suspect]
     Indication: ILL-DEFINED DISORDER
     Dosage: 2400 MG (600 MG, 4 IN 1 D),
     Dates: start: 20041208
  8. SINGULAIR ^MERCK^ (MONTELUKAST SODIUM) [Concomitant]
  9. UNIPHYL [Concomitant]
  10. TARKA [Concomitant]
  11. INSULIN NOVOLIN 70/30 (INSULIN HUMAN SEMISYNTHETIC, INSULIN ISOPHANE H [Concomitant]
  12. DULOXETINE HYDROCHLORIDE (DULOXETINE HYDROCHLORIDE) [Concomitant]
  13. NORFLEX [Concomitant]
  14. LASIX [Concomitant]
  15. MILK OF MAGNESIA TAB [Concomitant]
  16. LORTAB [Concomitant]
  17. IMDUR [Concomitant]
  18. LISINOPRIL [Concomitant]
  19. ASPIRIN [Concomitant]
  20. VERAPAMIL [Concomitant]
  21. ALL OTHER THERAPEUTIC PRODUCTS (ALL OTHER THERAPEUTIC PRODUCTS) [Concomitant]
  22. NEXIUM [Concomitant]
  23. MIRALAX [Concomitant]
  24. LEXAPRO [Concomitant]
  25. OXYGEN (OXYGEN) [Concomitant]
  26. INSULIN [Concomitant]
  27. NOVOLOG [Concomitant]

REACTIONS (11)
  - ABDOMINAL PAIN UPPER [None]
  - CONSTIPATION [None]
  - DIFFICULTY IN WALKING [None]
  - DISEASE RECURRENCE [None]
  - DRUG INEFFECTIVE [None]
  - HYPOAESTHESIA [None]
  - NEUROPATHY [None]
  - PAIN [None]
  - POST POLIO SYNDROME [None]
  - TREMOR [None]
  - WEIGHT INCREASED [None]
